FAERS Safety Report 12899187 (Version 1)
Quarter: 2016Q4

REPORT INFORMATION
  Report Type: Spontaneous
  Country: US (occurrence: US)
  Receive Date: 20161030
  Receipt Date: 20161030
  Transmission Date: 20170207
  Serious: No
  Sender: FDA-Public Use
  Company Number: None

PATIENT
  Age: 67 Year
  Sex: Male
  Weight: 90.5 kg

DRUGS (1)
  1. PREDNISONE. [Suspect]
     Active Substance: PREDNISONE
     Indication: CHRONIC OBSTRUCTIVE PULMONARY DISEASE
     Route: 048
     Dates: start: 20160915, end: 20160916

REACTIONS (6)
  - Agitation [None]
  - Hypertension [None]
  - Vision blurred [None]
  - Heart rate increased [None]
  - Visual impairment [None]
  - Restlessness [None]

NARRATIVE: CASE EVENT DATE: 20160916
